FAERS Safety Report 13059854 (Version 1)
Quarter: 2016Q4

REPORT INFORMATION
  Report Type: Spontaneous
  Country: US (occurrence: US)
  Receive Date: 20161223
  Receipt Date: 20161223
  Transmission Date: 20170207
  Serious: No
  Sender: FDA-Public Use
  Company Number: US-JAZZ-2016-US-024218

PATIENT
  Sex: Female

DRUGS (32)
  1. XYREM [Suspect]
     Active Substance: SODIUM OXYBATE
     Dosage: 5G, QD
     Route: 048
     Dates: start: 2015, end: 2016
  2. RABEPRAZOLE SODIUM. [Concomitant]
     Active Substance: RABEPRAZOLE SODIUM
  3. TIZANIDINE HCL [Concomitant]
     Active Substance: TIZANIDINE HYDROCHLORIDE
  4. PERCOCET                           /00446701/ [Concomitant]
     Active Substance: ACETAMINOPHEN\OXYCODONE HYDROCHLORIDE\OXYCODONE TEREPHTHALATE
  5. SEROQUEL [Concomitant]
     Active Substance: QUETIAPINE FUMARATE
  6. PROVIGIL [Concomitant]
     Active Substance: MODAFINIL
  7. SINEMET [Concomitant]
     Active Substance: CARBIDOPA\LEVODOPA
  8. XARELTO [Concomitant]
     Active Substance: RIVAROXABAN
  9. WELLBUTRIN [Concomitant]
     Active Substance: BUPROPION HYDROCHLORIDE
  10. LISINOPRIL. [Concomitant]
     Active Substance: LISINOPRIL
  11. LORTAB [Concomitant]
     Active Substance: ACETAMINOPHEN\HYDROCODONE BITARTRATE
  12. XANAX [Concomitant]
     Active Substance: ALPRAZOLAM
  13. XYREM [Suspect]
     Active Substance: SODIUM OXYBATE
     Indication: SOMNOLENCE
     Dosage: 3G, BID
     Route: 048
     Dates: start: 200502, end: 2005
  14. XYREM [Suspect]
     Active Substance: SODIUM OXYBATE
     Dosage: DOSE ADJUSTMENT
     Route: 048
     Dates: start: 2005, end: 2015
  15. XYREM [Suspect]
     Active Substance: SODIUM OXYBATE
     Dosage: 4G, QD
     Route: 048
     Dates: start: 2015, end: 2016
  16. LYRICA [Concomitant]
     Active Substance: PREGABALIN
  17. ESTROGEN [Concomitant]
     Active Substance: ESTRONE\SUS SCROFA OVARY
  18. SINGULAIR [Concomitant]
     Active Substance: MONTELUKAST SODIUM
  19. AMBIEN CR [Concomitant]
     Active Substance: ZOLPIDEM TARTRATE
  20. COLACE [Concomitant]
     Active Substance: DOCUSATE SODIUM
  21. COUMADIN [Concomitant]
     Active Substance: WARFARIN SODIUM
  22. MOBIC [Concomitant]
     Active Substance: MELOXICAM
  23. LOVASTATIN. [Concomitant]
     Active Substance: LOVASTATIN
  24. POTASSIUM CHLORIDE. [Concomitant]
     Active Substance: POTASSIUM CHLORIDE
  25. METHOCARBAMOL. [Concomitant]
     Active Substance: METHOCARBAMOL
  26. ZESTORETIC [Concomitant]
     Active Substance: HYDROCHLOROTHIAZIDE\LISINOPRIL
  27. ADDERALL [Concomitant]
     Active Substance: AMPHETAMINE ASPARTATE\AMPHETAMINE SULFATE\DEXTROAMPHETAMINE SACCHARATE\DEXTROAMPHETAMINE SULFATE
  28. CYMBALTA [Concomitant]
     Active Substance: DULOXETINE HYDROCHLORIDE
  29. PRILOSEC [Concomitant]
     Active Substance: OMEPRAZOLE MAGNESIUM
  30. LASIX [Concomitant]
     Active Substance: FUROSEMIDE
  31. ALPRAZOLAM. [Concomitant]
     Active Substance: ALPRAZOLAM
  32. SAVELLA [Concomitant]
     Active Substance: MILNACIPRAN HYDROCHLORIDE

REACTIONS (2)
  - Blood cholesterol increased [Recovered/Resolved]
  - Weight decreased [Unknown]
